FAERS Safety Report 16351426 (Version 1)
Quarter: 2019Q3

REPORT INFORMATION
  Report Type: Spontaneous
  Country: US (occurrence: US)
  Receive Date: 20190523
  Receipt Date: 20190523
  Transmission Date: 20191004
  Serious: Yes (Other)
  Sender: FDA-Public Use
  Company Number: None

PATIENT
  Age: 54 Year
  Sex: Male
  Weight: 100.9 kg

DRUGS (1)
  1. ATORVASTATIN [Suspect]
     Active Substance: ATORVASTATIN
     Indication: HYPERLIPIDAEMIA
     Route: 048
     Dates: start: 20160101, end: 20190523

REACTIONS (5)
  - Blood creatine phosphokinase increased [None]
  - Myalgia [None]
  - Respiratory tract infection [None]
  - Transaminases increased [None]
  - Asthenia [None]

NARRATIVE: CASE EVENT DATE: 20190523
